FAERS Safety Report 15840326 (Version 2)
Quarter: 2019Q1

REPORT INFORMATION
  Report Type: Spontaneous
  Country: FI (occurrence: FI)
  Receive Date: 20190117
  Receipt Date: 20190322
  Transmission Date: 20190417
  Serious: Yes (Other)
  Sender: FDA-Public Use
  Company Number: FI-MYLANLABS-2019M1003793

PATIENT
  Age: 62 Year
  Sex: Male

DRUGS (3)
  1. IRON [Concomitant]
     Active Substance: IRON
     Indication: IRON DEFICIENCY
     Dosage: UNK
  2. WARFARIN [Suspect]
     Active Substance: WARFARIN
     Indication: PRODUCT USED FOR UNKNOWN INDICATION
     Dosage: UNK
  3. ASPIRIN                            /00002701/ [Interacting]
     Active Substance: ASPIRIN
     Indication: PRODUCT USED FOR UNKNOWN INDICATION
     Dosage: 100 MG, QD (COMMENCED 1 MONTH LATER)

REACTIONS (6)
  - Iron deficiency [Recovered/Resolved]
  - Haemorrhagic anaemia [Unknown]
  - Melaena [Unknown]
  - Gastrointestinal haemorrhage [Recovered/Resolved]
  - Product administration error [Unknown]
  - Labelled drug-drug interaction medication error [Unknown]
